FAERS Safety Report 8348114-8 (Version None)
Quarter: 2012Q2

REPORT INFORMATION
  Report Type: 
  Country: None (occurrence: None)
  Receive Date: 20120509
  Receipt Date: 20120507
  Transmission Date: 20120825
  Serious: Yes (Death, Hospitalization)
  Sender: FDA-Public Use
  Company Number: PHHY2012BR038968

PATIENT
  Sex: Female

DRUGS (2)
  1. LEVOTHYROXINE SODIUM [Concomitant]
     Indication: THYROID DISORDER
     Dosage: 1 DF, DAILY
     Route: 048
  2. EXELON [Suspect]
     Dosage: 9MG/5CM^2, ONE PATCH DAILY
     Route: 062
     Dates: start: 20120201

REACTIONS (2)
  - SEPSIS [None]
  - DYSENTERY [None]
